FAERS Safety Report 5694963-4 (Version None)
Quarter: 2008Q2

REPORT INFORMATION
  Report Type: 
  Country: None (occurrence: None)
  Receive Date: 20080404
  Receipt Date: 20080324
  Transmission Date: 20081010
  Serious: Yes (Death)
  Sender: FDA-Public Use
  Company Number: US-JNJFOC-20080306835

PATIENT
  Age: 61 Year
  Sex: Male

DRUGS (6)
  1. FENTANYL [Suspect]
     Indication: DRUG USE FOR UNKNOWN INDICATION
     Route: 065
  2. DILAUDID [Concomitant]
     Route: 065
  3. VALIUM [Concomitant]
     Route: 065
  4. KETOROLAC [Concomitant]
     Route: 065
  5. DEMEROL [Concomitant]
     Route: 065
  6. TRAZODONE HCL [Concomitant]
     Route: 065

REACTIONS (7)
  - ABDOMINAL PAIN [None]
  - ANXIETY [None]
  - DEATH [None]
  - DEPRESSION [None]
  - PAIN [None]
  - REFUSAL OF TREATMENT BY PATIENT [None]
  - SUICIDAL BEHAVIOUR [None]
